FAERS Safety Report 6221983-3 (Version None)
Quarter: 2009Q2

REPORT INFORMATION
  Report Type: 
  Country: None (occurrence: None)
  Receive Date: 20090608
  Receipt Date: 20090608
  Transmission Date: 20091009
  Serious: Yes (Other)
  Sender: FDA-Public Use
  Company Number: None

PATIENT
  Age: 67 Year
  Sex: Male
  Weight: 174.6349 kg

DRUGS (2)
  1. LOVENOX [Suspect]
     Indication: DEEP VEIN THROMBOSIS
     Dosage: 100 MG TWICE DAILY SQ
     Route: 058
     Dates: start: 20090420, end: 20090427
  2. LOVENOX [Suspect]
     Indication: PULMONARY EMBOLISM
     Dosage: 100 MG TWICE DAILY SQ
     Route: 058
     Dates: start: 20090420, end: 20090427

REACTIONS (2)
  - HAEMORRHAGE [None]
  - INJECTION SITE NODULE [None]
